FAERS Safety Report 8778611 (Version 2)
Quarter: 2012Q4

REPORT INFORMATION
  Report Type: Report from Study
  Country: US (occurrence: US)
  Receive Date: 20120912
  Receipt Date: 20120919
  Transmission Date: 20130627
  Serious: Yes (Hospitalization)
  Sender: FDA-Public Use
  Company Number: US-JNJFOC-20120904471

PATIENT
  Age: 16 Year
  Sex: Male
  Weight: 61.7 kg

DRUGS (9)
  1. REMICADE [Suspect]
     Indication: COLITIS ULCERATIVE
     Route: 042
     Dates: start: 20120221
  2. 5-ASA [Concomitant]
     Route: 048
  3. HYDROCORTISONE [Concomitant]
  4. ACETAMINOPHEN [Concomitant]
  5. DIPHENHYDRAMINE [Concomitant]
  6. EPINEPHRINE [Concomitant]
  7. LORATADINE [Concomitant]
  8. MORPHINE [Concomitant]
  9. PREDNISONE [Concomitant]

REACTIONS (1)
  - Colitis ulcerative [Recovered/Resolved]
